FAERS Safety Report 6110570-3 (Version None)
Quarter: 2009Q1

REPORT INFORMATION
  Report Type: 
  Country: None (occurrence: None)
  Receive Date: 20090310
  Receipt Date: 20090302
  Transmission Date: 20090719
  Serious: Yes (Other)
  Sender: FDA-Public Use
  Company Number: US-JNJCH-2009005820

PATIENT
  Age: 60 Year
  Sex: Female
  Weight: 81.6 kg

DRUGS (1)
  1. VISINE-A [Suspect]
     Indication: ASTHENOPIA
     Dosage: TEXT:TWO DROPS IN EACH EYE ONCE
     Route: 047

REACTIONS (2)
  - APPLICATION SITE BURN [None]
  - DRY EYE [None]
